FAERS Safety Report 6913818-8 (Version None)
Quarter: 2010Q3

REPORT INFORMATION
  Report Type: 
  Country: None (occurrence: None)
  Receive Date: 20100809
  Receipt Date: 20100728
  Transmission Date: 20110219
  Serious: Yes (Other)
  Sender: FDA-Public Use
  Company Number: US-ROCHE-719048

PATIENT

DRUGS (1)
  1. BEVACIZUMAB [Suspect]
     Route: 031

REACTIONS (1)
  - RETINAL PIGMENT EPITHELIAL TEAR [None]
